FAERS Safety Report 12638752 (Version 1)
Quarter: 2016Q3

REPORT INFORMATION
  Report Type: Spontaneous
  Country: KW (occurrence: EG)
  Receive Date: 20160809
  Receipt Date: 20160809
  Transmission Date: 20161109
  Serious: No
  Sender: FDA-Public Use
  Company Number: EG-GREER LABORATORIES, INC.-1056130

PATIENT
  Age: 53 Year
  Sex: Male
  Weight: 74.09 kg

DRUGS (1)
  1. POLLENS - WEEDS AND GARDEN PLANTS, RUSSIAN THISTLE SALSOLA KALI [Suspect]
     Active Substance: SALSOLA KALI POLLEN
     Indication: RHINITIS ALLERGIC
     Route: 058
     Dates: start: 20160322

REACTIONS (5)
  - Erythema [Recovered/Resolved]
  - Product substitution issue [None]
  - Injection site induration [None]
  - Induration [Recovered/Resolved]
  - Injection site erythema [None]

NARRATIVE: CASE EVENT DATE: 20160622
